FAERS Safety Report 14303322 (Version 1)
Quarter: 2017Q4

REPORT INFORMATION
  Report Type: Spontaneous
  Country: FR (occurrence: FR)
  Receive Date: 20171219
  Receipt Date: 20171219
  Transmission Date: 20180321
  Serious: Yes (Other)
  Sender: FDA-Public Use
  Company Number: FR-OTSUKA-17030289

PATIENT
  Sex: Female
  Weight: 58 kg

DRUGS (3)
  1. IXPRIM [Concomitant]
     Active Substance: ACETAMINOPHEN\TRAMADOL HYDROCHLORIDE
     Indication: PAIN
     Dosage: FORMULATION-TRAMADOL 37.5MG/PARACETAMOL 325MG  1DF=4 TO 6 TABS
     Route: 065
  2. CYMBALTA [Suspect]
     Active Substance: DULOXETINE HYDROCHLORIDE
     Indication: PRODUCT USED FOR UNKNOWN INDICATION
     Dosage: DOSE REDUCED TO 30MG ON OCT12
     Route: 065
  3. ABILIFY [Suspect]
     Active Substance: ARIPIPRAZOLE
     Indication: BIPOLAR DISORDER
     Dosage: REDUCED TO 5MG/D  NOV12:DOSE REDUCED TO 5MG/2 DAYS
     Route: 065
     Dates: start: 201206

REACTIONS (4)
  - Somnolence [Not Recovered/Not Resolved]
  - Hyperhidrosis [Unknown]
  - Flushing [Unknown]
  - Disturbance in attention [Unknown]

NARRATIVE: CASE EVENT DATE: 2012
